FAERS Safety Report 4892361-4 (Version None)
Quarter: 2006Q1

REPORT INFORMATION
  Report Type: 
  Country: None (occurrence: None)
  Receive Date: 20060126
  Receipt Date: 20060125
  Transmission Date: 20060701
  Serious: Yes (Hospitalization)
  Sender: FDA-Public Use
  Company Number: 432364

PATIENT
  Age: 57 Year
  Sex: Male

DRUGS (3)
  1. DILATREND [Suspect]
     Dosage: 6.25MG TWICE PER DAY
     Route: 048
     Dates: start: 20051003
  2. UNSPECIFIED DRUG [Concomitant]
     Route: 065
  3. LASIX [Concomitant]
     Route: 065

REACTIONS (2)
  - CARDIAC FAILURE [None]
  - FLUID OVERLOAD [None]
